FAERS Safety Report 25013767 (Version 1)
Quarter: 2025Q1

REPORT INFORMATION
  Report Type: Report from Study
  Country: US (occurrence: US)
  Receive Date: 20250226
  Receipt Date: 20250226
  Transmission Date: 20250409
  Serious: Yes (Other)
  Sender: AVADEL CNS PHARMACEUTICALS, LLC
  Company Number: US-AVADEL CNS PHARMACEUTICALS, LLC-2025AVA00421

PATIENT

DRUGS (1)
  1. LUMRYZ [Suspect]
     Active Substance: SODIUM OXYBATE

REACTIONS (8)
  - Loss of consciousness [Unknown]
  - Middle insomnia [Unknown]
  - Sedation [Unknown]
  - Head injury [Unknown]
  - Fear [Unknown]
  - Somnolence [Unknown]
  - Nocturia [Unknown]
  - Pain [Unknown]
